FAERS Safety Report 25979876 (Version 1)
Quarter: 2025Q4

REPORT INFORMATION
  Report Type: Spontaneous
  Country: US (occurrence: US)
  Receive Date: 20251030
  Receipt Date: 20251030
  Transmission Date: 20260118
  Serious: No
  Sender: BAYER HEALTHCARE LLC
  Company Number: US-BAYER-2025A143079

PATIENT
  Age: 80 Year
  Sex: Female

DRUGS (1)
  1. MIRALAX [Suspect]
     Active Substance: POLYETHYLENE GLYCOL 3350
     Indication: Colonoscopy
     Dosage: MIX 8.3 OZ BOTTLE OF MIRALAX IN 32 OZ BOTTLE OF GATORADE AND CONSUME IT WITHING 2 HOURS
     Route: 048
     Dates: start: 20251027, end: 20251028

REACTIONS (1)
  - Product prescribing issue [Unknown]
